FAERS Safety Report 7992588-9 (Version None)
Quarter: 2011Q4

REPORT INFORMATION
  Report Type: 
  Country: None (occurrence: None)
  Receive Date: 20111219
  Receipt Date: 20111205
  Transmission Date: 20120403
  Serious: Yes (Other)
  Sender: FDA-Public Use
  Company Number: AU-COVIDIEN/TYCO HEALTHCARE/MALLINCKRODT-T201102813

PATIENT
  Sex: Male

DRUGS (10)
  1. FOLIC ACID [Concomitant]
     Dosage: 500 UG, UNK
  2. EXALGO [Suspect]
     Indication: PRODUCT USED FOR UNKNOWN INDICATION
     Dosage: 16 MG - 20 MG
     Route: 048
     Dates: start: 20111103, end: 20111110
  3. TRAMADOL HYDROCHLORIDE [Concomitant]
     Dosage: 200 MG, BID
     Dates: end: 20111103
  4. ADVANTAN [Concomitant]
     Dosage: 1 MG/G, UNK
  5. APIDRA [Concomitant]
     Dosage: UNK
  6. PANTOPRAZOLE [Concomitant]
     Dosage: 40 MG, UNK
  7. ZANEXTRA [Concomitant]
     Dosage: 10 MG, UNK
  8. LANTUS [Concomitant]
     Dosage: 100 UNITS, UNK
  9. PRESSIN                            /00338402/ [Concomitant]
     Dosage: 2 MG, UNK
  10. PANADOL OSTEO [Concomitant]
     Dosage: 665 MG, UNK

REACTIONS (7)
  - DYSARTHRIA [None]
  - ATAXIA [None]
  - OVERDOSE [None]
  - SEDATION [None]
  - MIOSIS [None]
  - BLOOD GLUCOSE INCREASED [None]
  - PRURITUS [None]
